FAERS Safety Report 12964407 (Version 2)
Quarter: 2016Q4

REPORT INFORMATION
  Report Type: Spontaneous
  Country: US (occurrence: US)
  Receive Date: 20161122
  Receipt Date: 20161129
  Transmission Date: 20170207
  Serious: Yes (Other)
  Sender: FDA-Public Use
  Company Number: US-SUNOVION-2016SUN002893

PATIENT
  Age: 34 Year
  Sex: Female
  Weight: 104.76 kg

DRUGS (8)
  1. ZOLPIDEM [Concomitant]
     Active Substance: ZOLPIDEM\ZOLPIDEM TARTRATE
     Dosage: UNK, QD
     Route: 048
  2. PRAZOSIN [Concomitant]
     Active Substance: PRAZOSIN
     Dosage: UNK, QD
     Route: 048
  3. LATUDA [Suspect]
     Active Substance: LURASIDONE HYDROCHLORIDE
     Indication: BIPOLAR DISORDER
     Dosage: 50 MG, QD (2 AND A HALF TABLETS OF 20 MG)
     Route: 048
     Dates: start: 201409
  4. PROPANOL [Concomitant]
     Active Substance: PROPRANOLOL HYDROCHLORIDE
     Dosage: UNK, QD
     Route: 048
  5. LITHIUM. [Concomitant]
     Active Substance: LITHIUM
     Dosage: UNK, QD
     Route: 048
  6. LAMOTRIGINE. [Concomitant]
     Active Substance: LAMOTRIGINE
     Dosage: UNK, QD
     Route: 048
  7. PROMETHAZINE [Concomitant]
     Active Substance: PROMETHAZINE\PROMETHAZINE HYDROCHLORIDE
     Dosage: UNK, QD
     Route: 048
  8. BUPROPION. [Concomitant]
     Active Substance: BUPROPION
     Dosage: UNK, QD
     Route: 048

REACTIONS (5)
  - Swelling face [Unknown]
  - Eye swelling [Unknown]
  - Chest pain [Unknown]
  - Hypersensitivity [Unknown]
  - Angioedema [Unknown]

NARRATIVE: CASE EVENT DATE: 20161115
